FAERS Safety Report 9926063 (Version 1)
Quarter: 2014Q1

REPORT INFORMATION
  Report Type: Report from Study
  Country: NL (occurrence: NL)
  Receive Date: 20140226
  Receipt Date: 20140226
  Transmission Date: 20141002
  Serious: Yes (Hospitalization)
  Sender: FDA-Public Use
  Company Number: PHHY2014NL023391

PATIENT
  Sex: Female

DRUGS (3)
  1. ZOMETA [Suspect]
     Indication: METASTASIS
     Dosage: 4 MG, PER 100 ML, ONCE PER 4 WEEKS
     Route: 042
  2. ZOMETA [Suspect]
     Dosage: 4 MG, PER 100 ML, ONCE PER 4 WEEKS
     Route: 042
     Dates: start: 20101029
  3. ZOMETA [Suspect]
     Dosage: 4 MG, PER 100 ML, ONCE PER 4 WEEKS
     Route: 042
     Dates: start: 20140127

REACTIONS (3)
  - Fall [Not Recovered/Not Resolved]
  - Rib fracture [Not Recovered/Not Resolved]
  - Musculoskeletal chest pain [Not Recovered/Not Resolved]
